FAERS Safety Report 21527782 (Version 11)
Quarter: 2024Q1

REPORT INFORMATION
  Report Type: Spontaneous
  Country: GB (occurrence: GB)
  Receive Date: 20221031
  Receipt Date: 20240227
  Transmission Date: 20240410
  Serious: Yes (Death, Hospitalization, Other)
  Sender: FDA-Public Use
  Company Number: GB-MYLANLABS-2019M1117808

PATIENT
  Age: 59 Year
  Sex: Male
  Weight: 62 kg

DRUGS (134)
  1. CHLORPROMAZINE [Suspect]
     Active Substance: CHLORPROMAZINE
     Indication: Schizophrenia
     Dosage: 75 MG
     Route: 048
  2. ARIPIPRAZOLE [Suspect]
     Active Substance: ARIPIPRAZOLE
     Indication: Schizophrenia
     Dosage: 5 MG
     Route: 048
  3. CLOZAPINE [Suspect]
     Active Substance: CLOZAPINE
     Indication: Schizophrenia
     Dosage: 6000 MG
     Route: 048
     Dates: start: 20100823
  4. CLOZAPINE [Suspect]
     Active Substance: CLOZAPINE
     Dosage: 245 MG, QD(AM)
     Route: 065
     Dates: start: 2011
  5. CLOZAPINE [Suspect]
     Active Substance: CLOZAPINE
     Dosage: UNK
     Route: 048
     Dates: start: 20100823
  6. CLOZAPINE [Suspect]
     Active Substance: CLOZAPINE
     Dosage: 100 MG, QD (AM)
     Route: 065
     Dates: start: 2011
  7. CLOZAPINE [Suspect]
     Active Substance: CLOZAPINE
     Dosage: 1 DF, QD
     Route: 065
     Dates: start: 2011
  8. CLOZAPINE [Suspect]
     Active Substance: CLOZAPINE
     Dosage: 600 MG, QD (AM)
     Route: 048
     Dates: start: 2011
  9. CLOZAPINE [Suspect]
     Active Substance: CLOZAPINE
     Dosage: 200 MG, BID
     Route: 048
     Dates: start: 20191209, end: 20191223
  10. CLOZAPINE [Suspect]
     Active Substance: CLOZAPINE
     Dosage: 50 MG, QD (MIDDAY)
     Route: 048
     Dates: start: 20200521
  11. CLOZAPINE [Suspect]
     Active Substance: CLOZAPINE
     Dosage: 300 MG, QD (PM)
     Route: 048
  12. CLOZAPINE [Suspect]
     Active Substance: CLOZAPINE
     Dosage: 400 MG, BID
     Route: 065
  13. CLOZAPINE [Suspect]
     Active Substance: CLOZAPINE
     Dosage: 275 MG, QD
     Route: 048
     Dates: start: 20200521, end: 2020
  14. CLOZAPINE [Suspect]
     Active Substance: CLOZAPINE
     Dosage: UNK UNK, QD
     Route: 048
     Dates: start: 20191209, end: 20191223
  15. CLOZAPINE [Suspect]
     Active Substance: CLOZAPINE
     Dosage: 200 MG, QD
     Route: 048
  16. CLOZAPINE [Suspect]
     Active Substance: CLOZAPINE
     Dosage: UNK
     Route: 048
     Dates: start: 20200521, end: 2021
  17. CLOZAPINE [Suspect]
     Active Substance: CLOZAPINE
     Dosage: 100 MG, QD
     Route: 048
  18. CLOZAPINE [Suspect]
     Active Substance: CLOZAPINE
     Dosage: 400 MG, QD
     Route: 048
     Dates: start: 20191209, end: 20191223
  19. CLOZAPINE [Suspect]
     Active Substance: CLOZAPINE
     Dosage: 6000 MG
     Route: 048
     Dates: start: 20200521, end: 2020
  20. CLOZAPINE [Suspect]
     Active Substance: CLOZAPINE
     Dosage: 6000 MG
     Route: 048
     Dates: start: 20201207
  21. CLOZAPINE [Suspect]
     Active Substance: CLOZAPINE
     Dosage: 6000 MG
     Route: 048
     Dates: start: 20201223, end: 20201223
  22. CLOZAPINE [Suspect]
     Active Substance: CLOZAPINE
     Dosage: 400 MG QD
     Route: 065
     Dates: start: 20201207
  23. CLOZAPINE [Suspect]
     Active Substance: CLOZAPINE
     Dosage: 245 MG
     Route: 048
     Dates: start: 20191209, end: 20191223
  24. CLOZAPINE [Suspect]
     Active Substance: CLOZAPINE
     Dosage: 6000 MG
     Route: 048
     Dates: start: 20191223, end: 20191223
  25. CLOZAPINE [Suspect]
     Active Substance: CLOZAPINE
     Dosage: 6000 MG
     Route: 048
     Dates: start: 20201209, end: 20201223
  26. CLOZAPINE [Suspect]
     Active Substance: CLOZAPINE
     Dosage: 6000 MG
     Route: 048
     Dates: start: 20200521
  27. CLOZAPINE [Suspect]
     Active Substance: CLOZAPINE
     Dosage: 800 MG, QD
     Route: 065
     Dates: start: 20201207
  28. CLOZAPINE [Suspect]
     Active Substance: CLOZAPINE
     Dosage: 275 MG, QD
     Route: 048
     Dates: start: 20191209, end: 20191223
  29. CLOZAPINE [Suspect]
     Active Substance: CLOZAPINE
     Dosage: 50 MG, QD
     Route: 065
     Dates: start: 20211209
  30. CLOZAPINE [Suspect]
     Active Substance: CLOZAPINE
     Dosage: 400 MG, QD
     Route: 048
     Dates: start: 20211223
  31. CLOZAPINE [Suspect]
     Active Substance: CLOZAPINE
     Dosage: 400 MG, QD
     Route: 048
     Dates: start: 20201207
  32. CLOZAPINE [Suspect]
     Active Substance: CLOZAPINE
     Dosage: 275 MG, QD
     Route: 065
  33. CLOZAPINE [Suspect]
     Active Substance: CLOZAPINE
     Dosage: UNK
     Route: 048
     Dates: start: 20191209, end: 20191223
  34. CLOZAPINE [Suspect]
     Active Substance: CLOZAPINE
     Dosage: UNK
     Dates: start: 2011
  35. CLOZAPINE [Suspect]
     Active Substance: CLOZAPINE
     Dosage: 245 MG
     Route: 048
     Dates: start: 20191207
  36. CLOZAPINE [Suspect]
     Active Substance: CLOZAPINE
     Dosage: 245 MG, QD
     Route: 048
     Dates: start: 20191223, end: 20191223
  37. CLOZAPINE [Suspect]
     Active Substance: CLOZAPINE
     Dosage: 245 MG
     Route: 048
     Dates: start: 20200521
  38. CLOZAPINE [Suspect]
     Active Substance: CLOZAPINE
     Dosage: 275 MG, BID
     Route: 048
     Dates: start: 20201207
  39. CLOZAPINE [Suspect]
     Active Substance: CLOZAPINE
     Dosage: 6000 MG, QD
     Route: 048
     Dates: start: 20201223, end: 20201223
  40. LITHIUM [Suspect]
     Active Substance: LITHIUM
     Indication: Schizophrenia
     Dosage: 1 G
     Route: 048
  41. LITHIUM [Suspect]
     Active Substance: LITHIUM
     Dosage: 2 G
     Route: 048
  42. LITHIUM [Suspect]
     Active Substance: LITHIUM
     Dosage: 6 MG, QD
     Route: 048
  43. LITHIUM [Suspect]
     Active Substance: LITHIUM
     Dosage: 1 MG
     Route: 048
  44. LORAZEPAM [Suspect]
     Active Substance: LORAZEPAM
     Indication: Schizophrenia
     Dosage: 1 MG
     Route: 048
  45. OLANZAPINE [Suspect]
     Active Substance: OLANZAPINE
     Indication: Schizophrenia
     Dosage: 15 MG
     Route: 065
     Dates: start: 20040217
  46. OLANZAPINE [Suspect]
     Active Substance: OLANZAPINE
     Dosage: 15 MG
     Route: 048
     Dates: start: 20060704
  47. OLANZAPINE [Suspect]
     Active Substance: OLANZAPINE
     Dosage: 10 MG
     Route: 065
  48. OLANZAPINE [Suspect]
     Active Substance: OLANZAPINE
     Dosage: 2.5 MG
     Route: 048
     Dates: start: 20080823
  49. OLANZAPINE [Suspect]
     Active Substance: OLANZAPINE
     Dosage: 1 MG
     Route: 048
  50. RISPERIDONE [Suspect]
     Active Substance: RISPERIDONE
     Indication: Schizophrenia
     Dosage: 3 MG, Q12H
     Route: 048
  51. RISPERIDONE [Suspect]
     Active Substance: RISPERIDONE
     Dosage: 2 MG, BID
     Route: 065
  52. RISPERIDONE [Suspect]
     Active Substance: RISPERIDONE
     Dosage: 1 G, QD
     Route: 065
  53. RISPERIDONE [Suspect]
     Active Substance: RISPERIDONE
     Dosage: 1 GRAM, QD
     Route: 065
  54. RISPERIDONE [Suspect]
     Active Substance: RISPERIDONE
     Dosage: 1 MG, QD
     Route: 065
  55. RISPERIDONE [Suspect]
     Active Substance: RISPERIDONE
     Dosage: 6 MG, QD
     Route: 048
  56. RISPERIDONE [Suspect]
     Active Substance: RISPERIDONE
     Dosage: 4 MG, QD
     Route: 065
  57. RISPERIDONE [Suspect]
     Active Substance: RISPERIDONE
     Dosage: 4 MG, BID
     Route: 065
  58. RISPERIDONE [Suspect]
     Active Substance: RISPERIDONE
     Dosage: 1 G, QD
     Route: 065
  59. RISPERIDONE [Suspect]
     Active Substance: RISPERIDONE
     Dosage: 1 G, QD
     Route: 065
  60. RISPERIDONE [Suspect]
     Active Substance: RISPERIDONE
     Dosage: 3 MG, BID
     Route: 048
  61. RISPERIDONE [Suspect]
     Active Substance: RISPERIDONE
     Dosage: 2 MG, BID
     Route: 065
  62. RISPERIDONE [Suspect]
     Active Substance: RISPERIDONE
     Dosage: 3 MG, BID
     Route: 048
  63. RISPERIDONE [Suspect]
     Active Substance: RISPERIDONE
     Dosage: 4 MG, BID (2 MG, BID)
     Route: 065
  64. RISPERIDONE [Suspect]
     Active Substance: RISPERIDONE
     Dosage: 1 MG, QD
     Route: 065
  65. RISPERIDONE [Suspect]
     Active Substance: RISPERIDONE
     Dosage: 6 MG, QD
     Route: 048
  66. ZUCLOPENTHIXOL HYDROCHLORIDE [Suspect]
     Active Substance: ZUCLOPENTHIXOL HYDROCHLORIDE
     Indication: Product used for unknown indication
     Dosage: 400 MG, BIW
     Route: 065
     Dates: start: 20030204, end: 20040217
  67. ZUCLOPENTHIXOL HYDROCHLORIDE [Suspect]
     Active Substance: ZUCLOPENTHIXOL HYDROCHLORIDE
     Dosage: 400 MG, QW
     Route: 065
     Dates: start: 20040217, end: 20040601
  68. ZUCLOPENTHIXOL HYDROCHLORIDE [Suspect]
     Active Substance: ZUCLOPENTHIXOL HYDROCHLORIDE
     Dosage: 400 MG, BIW
     Route: 065
     Dates: start: 20040601, end: 20041018
  69. ZUCLOPENTHIXOL HYDROCHLORIDE [Suspect]
     Active Substance: ZUCLOPENTHIXOL HYDROCHLORIDE
     Dosage: 400 MG, BIW
     Route: 065
     Dates: start: 20041018, end: 20041018
  70. ZUCLOPENTHIXOL HYDROCHLORIDE [Suspect]
     Active Substance: ZUCLOPENTHIXOL HYDROCHLORIDE
     Dosage: 300 MG, QW (300 MILLIGRAM I.M WEEKLY)
     Route: 030
     Dates: start: 20091009
  71. ZUCLOPENTHIXOL HYDROCHLORIDE [Suspect]
     Active Substance: ZUCLOPENTHIXOL HYDROCHLORIDE
     Dosage: UNK
     Route: 065
  72. ZUCLOPENTHIXOL HYDROCHLORIDE [Suspect]
     Active Substance: ZUCLOPENTHIXOL HYDROCHLORIDE
     Dosage: 400 MG, CYCLIC (400 MG, BIWEEKLY)
     Route: 065
     Dates: start: 20040601, end: 20041018
  73. ZUCLOPENTHIXOL HYDROCHLORIDE [Suspect]
     Active Substance: ZUCLOPENTHIXOL HYDROCHLORIDE
     Dosage: 300 MG, QW
     Route: 030
     Dates: start: 20091018
  74. ZUCLOPENTHIXOL HYDROCHLORIDE [Suspect]
     Active Substance: ZUCLOPENTHIXOL HYDROCHLORIDE
     Dosage: 300 MG, QD
     Route: 030
     Dates: start: 20091009
  75. ZUCLOPENTHIXOL HYDROCHLORIDE [Suspect]
     Active Substance: ZUCLOPENTHIXOL HYDROCHLORIDE
     Dosage: 400 MG, QCY
     Route: 065
     Dates: start: 20040217, end: 20040601
  76. DOCETAXEL [Suspect]
     Active Substance: DOCETAXEL\DOCETAXEL ANHYDROUS
     Indication: Breast cancer metastatic
     Dosage: 220 MG
     Route: 065
     Dates: start: 20151222
  77. DOCETAXEL [Suspect]
     Active Substance: DOCETAXEL\DOCETAXEL ANHYDROUS
     Dosage: 110 MG, Q3W
     Route: 042
     Dates: start: 20150930, end: 20151021
  78. DOCETAXEL [Suspect]
     Active Substance: DOCETAXEL\DOCETAXEL ANHYDROUS
     Dosage: UNK
     Dates: start: 20151222
  79. PACLITAXEL [Suspect]
     Active Substance: PACLITAXEL
     Indication: Breast cancer metastatic
     Dosage: 120 MG, QW
     Route: 065
     Dates: start: 20151111, end: 20151222
  80. PACLITAXEL [Suspect]
     Active Substance: PACLITAXEL
     Dosage: 120 MG, QW
     Dates: start: 20151223, end: 20151223
  81. PACLITAXEL [Suspect]
     Active Substance: PACLITAXEL
     Dosage: 150 MG, QW
     Route: 042
     Dates: start: 20151111, end: 20151222
  82. TRASTUZUMAB [Suspect]
     Active Substance: TRASTUZUMAB
     Indication: Breast cancer metastatic
     Dosage: 1218 MG, QW(CUMULATIVE DOSE 5575.25MG)
     Route: 065
     Dates: start: 20150930
  83. TRASTUZUMAB [Suspect]
     Active Substance: TRASTUZUMAB
     Dosage: 609 MG, Q3W (CUMULATIVE DOSE: 929.208333MG)
     Route: 042
     Dates: start: 20150930
  84. TRASTUZUMAB [Suspect]
     Active Substance: TRASTUZUMAB
     Dosage: 1827 MG, QW ((CUMULATIVE DOSE: 8362.875MG)
     Route: 065
     Dates: start: 20150930
  85. TRASTUZUMAB [Suspect]
     Active Substance: TRASTUZUMAB
     Dosage: 420 MG, Q3W
     Route: 065
  86. TRASTUZUMAB [Suspect]
     Active Substance: TRASTUZUMAB
     Dosage: 1218 MG, QW
     Dates: start: 20151130
  87. TRASTUZUMAB [Suspect]
     Active Substance: TRASTUZUMAB
     Dosage: 840 MG, QW
     Route: 065
  88. HALOPERIDOL [Suspect]
     Active Substance: HALOPERIDOL
     Indication: Schizophrenia
     Dosage: 5 MG, BID
     Route: 048
  89. HALOPERIDOL [Suspect]
     Active Substance: HALOPERIDOL
     Dosage: 10 MG, QD
     Route: 048
  90. HALOPERIDOL [Suspect]
     Active Substance: HALOPERIDOL
     Dosage: 20 MG, QD
     Route: 048
  91. HALOPERIDOL [Suspect]
     Active Substance: HALOPERIDOL
     Dosage: 40 MG, QD
     Route: 048
  92. HALOPERIDOL [Suspect]
     Active Substance: HALOPERIDOL
     Dosage: 20 MG, Q12H
     Route: 048
  93. HALOPERIDOL [Suspect]
     Active Substance: HALOPERIDOL
     Dosage: 5 MG, QD
     Route: 048
  94. PERTUZUMAB [Suspect]
     Active Substance: PERTUZUMAB
     Indication: Breast cancer metastatic
     Dosage: 840 MG, Q3W
     Route: 065
     Dates: start: 20150930
  95. PERTUZUMAB [Suspect]
     Active Substance: PERTUZUMAB
     Dosage: 420 MG, Q3W
     Route: 042
     Dates: start: 20151021
  96. PERTUZUMAB [Suspect]
     Active Substance: PERTUZUMAB
     Dosage: 420 MG, Q3W
  97. PERTUZUMAB [Suspect]
     Active Substance: PERTUZUMAB
     Dosage: 2 IU, QW
  98. DENOSUMAB [Suspect]
     Active Substance: DENOSUMAB
     Indication: Metastases to bone
     Dosage: 120 MG, QD
     Route: 058
     Dates: start: 20150930
  99. DENOSUMAB [Suspect]
     Active Substance: DENOSUMAB
     Indication: Gastrooesophageal reflux disease
     Dosage: 120 MG
     Dates: start: 20151112, end: 201511
  100. LITHIUM [Concomitant]
     Active Substance: LITHIUM
     Dosage: 1 MG
  101. LITHIUM [Concomitant]
     Active Substance: LITHIUM
     Dosage: 2 G
     Route: 048
  102. LITHIUM [Concomitant]
     Active Substance: LITHIUM
     Dosage: 2 G
     Route: 048
  103. LITHIUM [Concomitant]
     Active Substance: LITHIUM
     Dosage: 6 MG, QD
     Route: 048
  104. LITHIUM [Concomitant]
     Active Substance: LITHIUM
     Dosage: UNK
  105. LITHIUM [Concomitant]
     Active Substance: LITHIUM
     Dosage: 6 MG, QD
     Route: 048
  106. LITHIUM [Concomitant]
     Active Substance: LITHIUM
     Dosage: 1 MG
     Route: 048
  107. LITHIUM [Concomitant]
     Active Substance: LITHIUM
     Dosage: 1 G
  108. LITHIUM [Concomitant]
     Active Substance: LITHIUM
     Dosage: 1 MG
     Route: 048
  109. ZUCLOPENTHIXOL [Concomitant]
     Active Substance: ZUCLOPENTHIXOL
     Dosage: 400 MG, BIW
     Dates: start: 20040217, end: 20040601
  110. ZUCLOPENTHIXOL [Concomitant]
     Active Substance: ZUCLOPENTHIXOL
     Dosage: 300 MG, QW
     Route: 048
     Dates: start: 20091018
  111. CHLORPHENIRAMINE MALEATE [Concomitant]
     Active Substance: CHLORPHENIRAMINE MALEATE
     Indication: Product used for unknown indication
     Dosage: 10 MG, QW
     Route: 065
     Dates: start: 20151111
  112. CHOLECALCIFEROL [Concomitant]
     Active Substance: CHOLECALCIFEROL
     Indication: Product used for unknown indication
     Dosage: 2 DF, QD
     Route: 048
     Dates: start: 20091018
  113. DULOXETINE [Concomitant]
     Active Substance: DULOXETINE
     Indication: Product used for unknown indication
     Dosage: UNK
     Route: 065
  114. GENTAMICIN [Concomitant]
     Active Substance: GENTAMICIN
     Indication: Febrile neutropenia
     Dosage: UNK
     Route: 042
     Dates: start: 20151121, end: 201511
  115. LEVOFLOXACIN [Concomitant]
     Active Substance: LEVOFLOXACIN
     Indication: Febrile neutropenia
     Dosage: 500 MG, QD
     Route: 065
     Dates: start: 20151125
  116. LEVOFLOXACIN [Concomitant]
     Active Substance: LEVOFLOXACIN
     Dosage: 500 MG, QD
     Dates: start: 201510
  117. MIRTAZAPINE [Concomitant]
     Active Substance: MIRTAZAPINE
     Indication: Product used for unknown indication
     Dosage: 15 MG, QD
     Route: 065
     Dates: start: 201510
  118. MORPHINE [Concomitant]
     Active Substance: MORPHINE
     Indication: Pain
     Dosage: 10 MG
     Dates: start: 201509
  119. MORPHINE [Concomitant]
     Active Substance: MORPHINE
     Dosage: 60 MG, QD
     Route: 065
     Dates: start: 201509
  120. MORPHINE [Concomitant]
     Active Substance: MORPHINE
     Dosage: 30 MG, BID
     Route: 048
     Dates: start: 201509
  121. MORPHINE [Concomitant]
     Active Substance: MORPHINE
     Dosage: 15 MG, QD
     Route: 065
     Dates: start: 201510
  122. ACETAMINOPHEN [Concomitant]
     Active Substance: ACETAMINOPHEN
     Indication: Pain
     Dosage: 500 MG
     Route: 065
     Dates: start: 20150127
  123. ACETAMINOPHEN [Concomitant]
     Active Substance: ACETAMINOPHEN
     Dosage: 15 MG, QD
     Route: 065
     Dates: start: 201510
  124. PREGABALIN [Concomitant]
     Active Substance: PREGABALIN
     Indication: Product used for unknown indication
     Dosage: 75 MG, BID
     Route: 048
     Dates: start: 201509
  125. RANITIDINE [Concomitant]
     Active Substance: RANITIDINE
     Indication: Gastrooesophageal reflux disease
     Dosage: 50 MG, QW
     Route: 058
     Dates: start: 20151111
  126. RANITIDINE [Concomitant]
     Active Substance: RANITIDINE
     Dosage: 150 MG, QW
     Route: 058
  127. RANITIDINE [Concomitant]
     Active Substance: RANITIDINE
     Dosage: 75 MG, QW
     Route: 058
  128. TAZOBACTAM SODIUM [Concomitant]
     Active Substance: TAZOBACTAM SODIUM
     Indication: Febrile neutropenia
     Dosage: UNK
     Route: 065
     Dates: start: 20151121, end: 20151121
  129. AMOXICILLIN\CLAVULANATE POTASSIUM [Concomitant]
     Active Substance: AMOXICILLIN\CLAVULANATE POTASSIUM
     Indication: Febrile neutropenia
     Dosage: 625 MG, QID
     Dates: start: 20151111
  130. AMOXICILLIN\CLAVULANATE POTASSIUM [Concomitant]
     Active Substance: AMOXICILLIN\CLAVULANATE POTASSIUM
     Dosage: 625 MG, QID
     Route: 065
     Dates: start: 20151122, end: 20151125
  131. AMOXICILLIN\CLAVULANATE POTASSIUM [Concomitant]
     Active Substance: AMOXICILLIN\CLAVULANATE POTASSIUM
     Dosage: 2500 MG, QD
     Route: 065
     Dates: start: 20151122, end: 20151122
  132. MORPHINE SULFATE [Concomitant]
     Active Substance: MORPHINE SULFATE
     Indication: Product used for unknown indication
     Dosage: 10 MG
     Route: 065
     Dates: start: 201509
  133. CALCIUM\CHOLECALCIFEROL [Concomitant]
     Active Substance: CALCIUM\CHOLECALCIFEROL
     Dosage: UNK
  134. PIPERACILLIN SODIUM\TAZOBACTAM SODIUM [Concomitant]
     Active Substance: PIPERACILLIN SODIUM\TAZOBACTAM SODIUM
     Dosage: UNK

REACTIONS (30)
  - Hallucination, auditory [Fatal]
  - Lymphocyte count decreased [Fatal]
  - Fatigue [Fatal]
  - Neutropenia [Fatal]
  - Platelet count decreased [Fatal]
  - Leukopenia [Fatal]
  - Delusion of grandeur [Fatal]
  - Schizophrenia [Fatal]
  - Extrapyramidal disorder [Fatal]
  - Affective disorder [Fatal]
  - Psychotic disorder [Fatal]
  - Neutrophil count increased [Fatal]
  - SARS-CoV-2 test positive [Fatal]
  - Neoplasm progression [Fatal]
  - Seizure [Fatal]
  - Alopecia [Fatal]
  - Neuropathy peripheral [Fatal]
  - Diarrhoea [Fatal]
  - Cellulitis [Fatal]
  - Rhinalgia [Fatal]
  - Nausea [Fatal]
  - Dyspepsia [Fatal]
  - Mucosal inflammation [Fatal]
  - Thrombocytopenia [Fatal]
  - Leukocytosis [Fatal]
  - Hospitalisation [Fatal]
  - Overdose [Fatal]
  - Off label use [Fatal]
  - Off label use [Fatal]
  - Incorrect dose administered [Fatal]

NARRATIVE: CASE EVENT DATE: 20151101
